FAERS Safety Report 9796700 (Version 1)
Quarter: 2014Q1

REPORT INFORMATION
  Report Type: Spontaneous
  Country: TR (occurrence: TR)
  Receive Date: 20140103
  Receipt Date: 20140103
  Transmission Date: 20141002
  Serious: Yes (Hospitalization, Other)
  Sender: FDA-Public Use
  Company Number: TR-TAKEDA-2014TUS000016

PATIENT
  Sex: 0

DRUGS (5)
  1. COLCHICINE [Suspect]
     Dosage: 0.5 MG, BID
  2. CLARITHROMYCIN [Suspect]
     Dosage: 500 MG, BID
  3. DOXAZOSIN [Concomitant]
     Dosage: 4 MG, QD
  4. FUROSEMIDE [Concomitant]
     Dosage: 40 MG ON NON-DIALYSIS DAYS
  5. SEVELAMER [Concomitant]
     Dosage: 1600 MG, TID

REACTIONS (2)
  - Drug interaction [Recovered/Resolved]
  - Rhabdomyolysis [Recovered/Resolved]
